FAERS Safety Report 6916331-7 (Version None)
Quarter: 2010Q3

REPORT INFORMATION
  Report Type: 
  Country: None (occurrence: None)
  Receive Date: 20100810
  Receipt Date: 20100730
  Transmission Date: 20110219
  Serious: Yes (Hospitalization)
  Sender: FDA-Public Use
  Company Number: DE-JNJFOC-20100502859

PATIENT
  Age: 7 Decade
  Sex: Male

DRUGS (2)
  1. REOPRO [Suspect]
     Indication: MYOCARDIAL INFARCTION
     Route: 022
  2. REOPRO [Suspect]
     Route: 042

REACTIONS (2)
  - CEREBROVASCULAR ACCIDENT [None]
  - INCORRECT ROUTE OF DRUG ADMINISTRATION [None]
